FAERS Safety Report 5918824-8 (Version None)
Quarter: 2008Q4

REPORT INFORMATION
  Report Type: 
  Country: None (occurrence: None)
  Receive Date: 20081015
  Receipt Date: 20081001
  Transmission Date: 20090506
  Serious: Yes (Hospitalization, Other)
  Sender: FDA-Public Use
  Company Number: US-AMGEN-US310964

PATIENT
  Sex: Male
  Weight: 109.2 kg

DRUGS (15)
  1. ENBREL [Suspect]
     Indication: RHEUMATOID ARTHRITIS
     Route: 065
     Dates: start: 20080501, end: 20080701
  2. LUNESTA [Concomitant]
     Route: 065
     Dates: start: 20070101, end: 20080817
  3. XANAX [Concomitant]
     Route: 065
     Dates: start: 20080724
  4. LAMICTAL [Concomitant]
     Route: 065
  5. PROZAC [Concomitant]
     Route: 065
  6. OXYCONTIN [Concomitant]
     Route: 065
  7. PERCOCET [Concomitant]
     Route: 065
  8. FINASTERIDE [Concomitant]
     Route: 065
  9. MIRAPEX [Concomitant]
     Route: 065
  10. CELEBREX [Concomitant]
     Route: 065
  11. METHOTREXATE SODIUM [Concomitant]
     Route: 065
  12. ATENOLOL [Concomitant]
     Route: 065
  13. ZOCOR [Concomitant]
     Route: 065
  14. ABILIFY [Concomitant]
     Route: 065
  15. ATIVAN [Concomitant]
     Route: 065

REACTIONS (23)
  - CHEST DISCOMFORT [None]
  - DELIRIUM [None]
  - DYSARTHRIA [None]
  - DYSPHAGIA [None]
  - FATIGUE [None]
  - FEBRILE NEUTROPENIA [None]
  - GAIT DISTURBANCE [None]
  - HAEMOPTYSIS [None]
  - HEADACHE [None]
  - HYPOGLYCAEMIA [None]
  - LETHARGY [None]
  - MASTICATION DISORDER [None]
  - METHICILLIN-RESISTANT STAPHYLOCOCCAL AUREUS TEST POSITIVE [None]
  - ORAL CANDIDIASIS [None]
  - OROPHARYNGEAL PAIN [None]
  - PANCYTOPENIA [None]
  - PNEUMONIA [None]
  - PRURITUS [None]
  - RASH ERYTHEMATOUS [None]
  - STAPHYLOCOCCAL IDENTIFICATION TEST POSITIVE [None]
  - THROAT TIGHTNESS [None]
  - TRANSIENT ISCHAEMIC ATTACK [None]
  - WEIGHT DECREASED [None]
